FAERS Safety Report 8134327-7 (Version None)
Quarter: 2012Q1

REPORT INFORMATION
  Report Type: 
  Country: None (occurrence: None)
  Receive Date: 20120209
  Receipt Date: 20120120
  Transmission Date: 20120608
  Serious: Yes (Disabling, Other)
  Sender: FDA-Public Use
  Company Number: COL_10293_2011

PATIENT
  Sex: Male

DRUGS (4)
  1. CHLORHEXIDINE GLUCONATE [Suspect]
     Indication: MUCOSAL INFLAMMATION
     Dosage: (ORAL)
     Route: 048
  2. CHLORHEXIDINE GLUCONATE [Suspect]
     Indication: GINGIVITIS
     Dosage: (ORAL)
     Route: 048
  3. CHLORHEXIDINE GLUCONATE [Suspect]
     Indication: POSTOPERATIVE WOUND INFECTION
     Dosage: (ORAL)
     Route: 048
  4. CHLORHEXIDINE GLUCONATE [Suspect]

REACTIONS (3)
  - GASTROINTESTINAL INFECTION [None]
  - EDUCATIONAL PROBLEM [None]
  - IMMUNE SYSTEM DISORDER [None]
